FAERS Safety Report 23100436 (Version 1)
Quarter: 2023Q4

REPORT INFORMATION
  Report Type: Report from Study
  Country: IT (occurrence: IT)
  Receive Date: 20231024
  Receipt Date: 20231024
  Transmission Date: 20240110
  Serious: Yes (Death, Hospitalization)
  Sender: FDA-Public Use
  Company Number: IT-OTSUKA-2023_027471

PATIENT
  Age: 72 Year
  Sex: Male
  Weight: 80 kg

DRUGS (9)
  1. DECITABINE [Suspect]
     Active Substance: DECITABINE
     Indication: Acute myeloid leukaemia
     Dosage: DATE OF LAST DOSE BEFORE SAE: 07-APR-2023 (40 MG,1 IN 1 D)
     Route: 042
     Dates: start: 20230403, end: 20230407
  2. VENETOCLAX [Suspect]
     Active Substance: VENETOCLAX
     Indication: Acute myeloid leukaemia
     Dosage: DATE OF LAST DOSE BEFORE SAE: 10-APR-2023 LAST DOSE ADMINISTERED: 50 MG (50 MG,1 IN 1 D)
     Route: 048
     Dates: start: 20230403, end: 20230410
  3. POSACONAZOLE [Concomitant]
     Active Substance: POSACONAZOLE
     Indication: Antifungal prophylaxis
     Dosage: 303.0303 MG (100 MG,1 IN 0.33 D)
     Route: 048
  4. PANTOPRAZOLE [Concomitant]
     Active Substance: PANTOPRAZOLE
     Indication: Gastrointestinal disorder therapy
     Dosage: 20 MG (20 MG,1 IN 1D)
     Route: 048
  5. METOPROLOL [Concomitant]
     Active Substance: METOPROLOL
     Indication: Tachycardia
     Dosage: 100 MG (100 MG,1 IN 1 D)
     Route: 048
  6. FUROSEMIDE [Concomitant]
     Active Substance: FUROSEMIDE
     Indication: Oedema
     Dosage: 20 MG (20 MG,1 IN 1 D)
     Route: 048
  7. ALFUZOSIN [Concomitant]
     Active Substance: ALFUZOSIN
     Indication: Benign prostatic hyperplasia
     Dosage: 10 MG (10 MG,1 IN 1 D)
     Route: 048
  8. POTASSIUM CHLORIDE [Concomitant]
     Active Substance: POTASSIUM CHLORIDE
     Indication: Hypokalaemia
     Dosage: 1200 MG (600 MG,1 IN 0.5 D)
     Route: 048
  9. AMPHOTERICIN B [Concomitant]
     Active Substance: AMPHOTERICIN B
     Indication: Prophylaxis
     Dosage: 200 MG (200 MG,1 IN 1 D)
     Route: 042
     Dates: start: 20230421, end: 20230425

REACTIONS (3)
  - Condition aggravated [Fatal]
  - Febrile neutropenia [Fatal]
  - Pneumonia [Fatal]

NARRATIVE: CASE EVENT DATE: 20230411
